FAERS Safety Report 9196270 (Version 1)
Quarter: 2013Q1

REPORT INFORMATION
  Report Type: Spontaneous
  Country: IT (occurrence: IT)
  Receive Date: 20130328
  Receipt Date: 20130328
  Transmission Date: 20140127
  Serious: Yes (Other)
  Sender: FDA-Public Use
  Company Number: IT-PFIZER INC-2013097070

PATIENT
  Age: 77 Year
  Sex: Female

DRUGS (3)
  1. CARBOPLATINO [Suspect]
     Indication: ADJUVANT THERAPY
     Dosage: 465 MG, CYCLIC
     Dates: start: 20120925, end: 20130305
  2. SOLDESAM [Concomitant]
  3. ZOFRAN [Concomitant]

REACTIONS (4)
  - Erythema [Recovered/Resolved]
  - Pruritus [Recovered/Resolved]
  - Generalised erythema [Recovered/Resolved]
  - Hypersensitivity [Recovered/Resolved]
